FAERS Safety Report 20591405 (Version 1)
Quarter: 2022Q1

REPORT INFORMATION
  Report Type: Report from Study
  Country: US (occurrence: US)
  Receive Date: 20220314
  Receipt Date: 20220314
  Transmission Date: 20220423
  Serious: Yes (Hospitalization)
  Sender: FDA-Public Use
  Company Number: US-ABBVIE-22K-163-4314162-00

PATIENT
  Sex: Male

DRUGS (4)
  1. VENCLEXTA [Suspect]
     Active Substance: VENETOCLAX
     Indication: Chronic lymphocytic leukaemia
     Route: 048
  2. PFIZER BIONTECH COVID-19 [Concomitant]
     Indication: COVID-19 immunisation
     Dosage: 1ST DOSE
     Route: 030
     Dates: start: 20210301, end: 20210301
  3. PFIZER BIONTECH COVID-19 [Concomitant]
     Dosage: 2ND DOSE
     Route: 030
     Dates: start: 20210401, end: 20210401
  4. PFIZER BIONTECH COVID-19 [Concomitant]
     Dosage: 3RD DOSE
     Route: 030
     Dates: start: 20211101, end: 20211101

REACTIONS (1)
  - Adverse drug reaction [Unknown]
